FAERS Safety Report 5926970-8 (Version None)
Quarter: 2008Q4

REPORT INFORMATION
  Report Type: 
  Country: None (occurrence: None)
  Receive Date: 20081022
  Receipt Date: 20081007
  Transmission Date: 20090506
  Serious: Yes (Other)
  Sender: FDA-Public Use
  Company Number: CH-ROCHE-490365

PATIENT
  Sex: Male
  Weight: 71 kg

DRUGS (8)
  1. PEGASYS [Suspect]
     Dosage: FORM: VIAL
     Route: 058
     Dates: start: 20070207, end: 20070223
  2. TOREM [Concomitant]
     Route: 048
  3. DILATREND [Concomitant]
     Route: 048
  4. CALCIUM CARBONATE [Concomitant]
     Dosage: DOSING REGIMEN: NINE TABLETS PER DAY.
     Route: 048
  5. VITAMINE D [Concomitant]
     Dosage: REPORTED AS VITAMIN D3.
     Route: 048
  6. ASPIRIN [Concomitant]
     Route: 048
  7. VALCYTE [Concomitant]
     Route: 048
  8. HUMALOG [Concomitant]

REACTIONS (2)
  - HAEMATURIA [None]
  - RHABDOMYOLYSIS [None]
